FAERS Safety Report 9345838 (Version 1)
Quarter: 2013Q2

REPORT INFORMATION
  Report Type: Spontaneous
  Country: US (occurrence: US)
  Receive Date: 20130613
  Receipt Date: 20130613
  Transmission Date: 20140414
  Serious: No
  Sender: FDA-Public Use
  Company Number: US-BAYER-2013-072165

PATIENT
  Age: 81 Year
  Sex: Female
  Weight: 62.59 kg

DRUGS (2)
  1. ALEVE TABLET [Suspect]
     Dosage: 1 DF, BID
     Route: 048
     Dates: start: 201303, end: 20130606
  2. OXYCODONE [Concomitant]

REACTIONS (3)
  - Pre-existing condition improved [Recovered/Resolved]
  - Drug ineffective [None]
  - Insomnia [Recovered/Resolved]
